FAERS Safety Report 6203614-1 (Version None)
Quarter: 2009Q2

REPORT INFORMATION
  Report Type: 
  Country: None (occurrence: None)
  Receive Date: 20090521
  Receipt Date: 20090508
  Transmission Date: 20091009
  Serious: Yes (Hospitalization)
  Sender: FDA-Public Use
  Company Number: ADE# 09-215DPR

PATIENT
  Age: 65 Year
  Sex: Male

DRUGS (7)
  1. DIGOXIN [Suspect]
     Indication: HEART RATE IRREGULAR
     Dosage: 2 TABLETS DAILY, LONG TIME
     Dates: end: 20090301
  2. FUROSEMIDE [Concomitant]
  3. ALLOPURINOL [Concomitant]
  4. DOXAZOSIN MESYLATE [Concomitant]
  5. RANITIDINE [Concomitant]
  6. MECLIZINE [Concomitant]
  7. ALBUTEROL [Concomitant]

REACTIONS (2)
  - DIZZINESS [None]
  - MUSCULOSKELETAL CHEST PAIN [None]
